FAERS Safety Report 15180873 (Version 2)
Quarter: 2018Q3

REPORT INFORMATION
  Report Type: Spontaneous
  Country: GB (occurrence: GB)
  Receive Date: 20180723
  Receipt Date: 20180803
  Transmission Date: 20181010
  Serious: Yes (Hospitalization, Other)
  Sender: FDA-Public Use
  Company Number: GB-MYLANLABS-2018M1046142

PATIENT
  Age: 37 Year
  Sex: Male

DRUGS (1)
  1. CLOZARIL [Suspect]
     Active Substance: CLOZAPINE
     Indication: SCHIZOPHRENIA
     Dosage: UNK
     Route: 048
     Dates: start: 20141021

REACTIONS (11)
  - White blood cell count decreased [Recovered/Resolved]
  - Mean cell haemoglobin concentration increased [Recovered/Resolved]
  - Monocyte count increased [Recovering/Resolving]
  - Neutropenia [Recovered/Resolved]
  - Neutrophil count increased [Not Recovered/Not Resolved]
  - Red blood cell count decreased [Not Recovered/Not Resolved]
  - Electrocardiogram QT prolonged [Unknown]
  - Mean cell haemoglobin increased [Recovering/Resolving]
  - Haematocrit decreased [Not Recovered/Not Resolved]
  - Haemoglobin decreased [Unknown]
  - Hospitalisation [Unknown]

NARRATIVE: CASE EVENT DATE: 20180620
